FAERS Safety Report 7337202-0 (Version None)
Quarter: 2011Q1

REPORT INFORMATION
  Report Type: 
  Country: None (occurrence: None)
  Receive Date: 20110308
  Receipt Date: 20110303
  Transmission Date: 20110831
  Serious: Yes (Other)
  Sender: FDA-Public Use
  Company Number: US-PFIZER INC-2011047572

PATIENT
  Sex: Male
  Weight: 81 kg

DRUGS (1)
  1. TYGACIL [Suspect]
     Indication: SEPTIC SHOCK
     Dosage: 25 MG, 2X/DAY
     Route: 042
     Dates: start: 20110228

REACTIONS (3)
  - INTERNATIONAL NORMALISED RATIO INCREASED [None]
  - ACTIVATED PARTIAL THROMBOPLASTIN TIME PROLONGED [None]
  - INTERNATIONAL NORMALISED RATIO ABNORMAL [None]
